FAERS Safety Report 16006951 (Version 1)
Quarter: 2019Q1

REPORT INFORMATION
  Report Type: Spontaneous
  Country: FR (occurrence: FR)
  Receive Date: 20190226
  Receipt Date: 20190226
  Transmission Date: 20190418
  Serious: Yes (Death)
  Sender: FDA-Public Use
  Company Number: FR-JUBILANT CADISTA PHARMACEUTICALS-2019JUB00056

PATIENT

DRUGS (1)
  1. PREDNISONE. [Suspect]
     Active Substance: PREDNISONE
     Indication: NEPHROTIC SYNDROME
     Dosage: 1.0 MG/KG, 1X/DAY
     Route: 048

REACTIONS (2)
  - Gastric ulcer [Fatal]
  - Shock haemorrhagic [Fatal]
